FAERS Safety Report 7098878-9 (Version None)
Quarter: 2010Q4

REPORT INFORMATION
  Report Type: 
  Country: None (occurrence: None)
  Receive Date: 20101112
  Receipt Date: 20101109
  Transmission Date: 20110411
  Serious: Yes (Other)
  Sender: FDA-Public Use
  Company Number: NL-PFIZER INC-2010144477

PATIENT
  Age: 69 Year
  Sex: Male
  Weight: 83 kg

DRUGS (6)
  1. CYKLOKAPRON [Suspect]
     Indication: SURGERY
     Dosage: 2 G, SINGLE
     Dates: start: 20100928, end: 20100928
  2. CARBASALATE CALCIUM [Concomitant]
     Dosage: 100 MG, 1X/DAY
  3. CEFAMANDOLE [Concomitant]
     Dosage: 1 G, 1X/DAY
     Dates: start: 20100928, end: 20100929
  4. MORPHINE [Concomitant]
     Dosage: 2 MG, AS NEEDED
     Dates: start: 20100928
  5. PARACETAMOL [Concomitant]
     Dosage: 1000 MG, 4X/DAY
     Dates: start: 20100927
  6. SIMVASTATIN [Concomitant]
     Dosage: 40 MG, 1X/DAY

REACTIONS (1)
  - HYPERTENSION [None]
